FAERS Safety Report 24562839 (Version 2)
Quarter: 2024Q4

REPORT INFORMATION
  Report Type: Report from Study
  Country: ES (occurrence: ES)
  Receive Date: 20241029
  Receipt Date: 20241105
  Transmission Date: 20250114
  Serious: Yes (Other)
  Sender: ABBVIE
  Company Number: ES-ABBVIE-5904946

PATIENT
  Age: 81 Year
  Sex: Male

DRUGS (4)
  1. CARBIDOPA\LEVODOPA [Suspect]
     Active Substance: CARBIDOPA\LEVODOPA
     Indication: Parkinson^s disease
     Dosage: HIGH DOSE: 0.44; BASE DOSE: 0.42; LOW DOSE: 0.20; LOADING DOSE: 1.2; EXTRA DOSE: 0.15
     Route: 058
     Dates: start: 2024, end: 20240829
  2. CARBIDOPA\LEVODOPA [Suspect]
     Active Substance: CARBIDOPA\LEVODOPA
     Dosage: HIGH DOSE: 0.41; BASE DOSE: 0.39; LOW DOSE: 0.20; LOADING DOSE: 1.2; EXTRA DOSE: 0.15 F
     Route: 058
     Dates: start: 20240902
  3. CARBIDOPA\LEVODOPA [Suspect]
     Active Substance: CARBIDOPA\LEVODOPA
     Dosage: HIGH DOSE: 0.44; BASE DOSE: 0.42; LOW DOSE: 0.20; LOADING DOSE: 1.2; EXTRA DOSE: 0.15?LAST DOSE A...
     Route: 058
     Dates: start: 20240515
  4. CARBIDOPA\LEVODOPA [Suspect]
     Active Substance: CARBIDOPA\LEVODOPA
     Route: 058
     Dates: start: 2024, end: 2024

REACTIONS (24)
  - Aggression [Recovered/Resolved]
  - Food refusal [Recovered/Resolved]
  - Disorientation [Recovered/Resolved]
  - Hallucination [Unknown]
  - Dehydration [Recovered/Resolved]
  - Refusal of treatment by patient [Recovered/Resolved]
  - Irritability [Recovered/Resolved]
  - Condition aggravated [Recovering/Resolving]
  - Unevaluable event [Unknown]
  - Agitation [Recovered/Resolved]
  - Hallucinations, mixed [Recovered/Resolved]
  - Mania [Unknown]
  - Loss of personal independence in daily activities [Not Recovered/Not Resolved]
  - Feeling guilty [Unknown]
  - Abnormal behaviour [Unknown]
  - Suspiciousness [Recovered/Resolved]
  - Delusion [Recovered/Resolved]
  - Intentional medical device removal by patient [Unknown]
  - Refusal of treatment by patient [Recovering/Resolving]
  - Agitation [Not Recovered/Not Resolved]
  - Irritability [Recovered/Resolved]
  - Suspiciousness [Recovering/Resolving]
  - Hypotension [Unknown]
  - Delirium [Recovered/Resolved]

NARRATIVE: CASE EVENT DATE: 20240101
